FAERS Safety Report 6521644-7 (Version None)
Quarter: 2009Q4

REPORT INFORMATION
  Report Type: 
  Country: None (occurrence: None)
  Receive Date: 20091230
  Receipt Date: 20091218
  Transmission Date: 20100525
  Serious: Yes (Hospitalization)
  Sender: FDA-Public Use
  Company Number: PHHY2009CA57117

PATIENT
  Sex: Female

DRUGS (1)
  1. SANDOSTATIN [Suspect]
     Indication: SHORT-BOWEL SYNDROME
     Dosage: UNK
     Route: 058

REACTIONS (2)
  - COLOSTOMY [None]
  - INTESTINAL OPERATION [None]
